FAERS Safety Report 8989317 (Version 4)
Quarter: 2013Q2

REPORT INFORMATION
  Report Type: Report from Study
  Country: ES (occurrence: ES)
  Receive Date: 20121228
  Receipt Date: 20130620
  Transmission Date: 20140414
  Serious: Yes (Hospitalization)
  Sender: FDA-Public Use
  Company Number: ES-BAYER-2012-092386

PATIENT
  Age: 70 Year
  Sex: Male
  Weight: 66 kg

DRUGS (6)
  1. REGORAFENIB [Suspect]
     Indication: COLON CANCER
     Dosage: 160 MG, QD
     Route: 048
     Dates: start: 20120820, end: 20120902
  2. COZAAR [Concomitant]
     Indication: HYPERTENSION
     Dosage: 50 MG, DAILY
     Route: 048
     Dates: start: 20120827
  3. ADIRO [Concomitant]
     Indication: HYPERTENSION
     Dosage: DAILY DOSE: 300MG
     Route: 048
  4. PANTOPRAZOLE [Concomitant]
     Indication: PROPHYLAXIS
     Dosage: DAILY DOSE 40 MG
     Route: 048
  5. ESCITALOPRAM [Concomitant]
     Indication: ANXIETY
     Dosage: DAILY DOSE 10 MG
     Route: 048
  6. ZYPREXA [Concomitant]
     Indication: PROSTATE CANCER
     Dosage: DAILY DOSE 10 MG/24HR
     Route: 048

REACTIONS (1)
  - Transient ischaemic attack [Recovered/Resolved]
